FAERS Safety Report 17024783 (Version 1)
Quarter: 2020Q3

REPORT INFORMATION
  Report Type: Report from Study
  Country: CR (occurrence: CR)
  Receive Date: 20191113
  Receipt Date: 20191113
  Transmission Date: 20201105
  Serious: Yes (Other)
  Sender: FDA-Public Use
  Company Number: NVSC2019CR032478

PATIENT
  Age: 79 Year
  Sex: Female

DRUGS (2)
  1. DIOVAN [Suspect]
     Active Substance: VALSARTAN
     Indication: PRODUCT USED FOR UNKNOWN INDICATION
     Dosage: 160 MG, 6 YEARS AGO
     Route: 065
  2. CO?DIOVAN [Suspect]
     Active Substance: HYDROCHLOROTHIAZIDE\VALSARTAN
     Indication: PRODUCT USED FOR UNKNOWN INDICATION
     Dosage: 1 DF (25 MG HYDROCHLORTHIAZIDE, 3 MG VALSARTAN), 2 YEARS AND A HALF AGO
     Route: 065

REACTIONS (5)
  - Chronic kidney disease [Unknown]
  - Cardiac disorder [Unknown]
  - Inflammation [Unknown]
  - Incorrect dosage administered [Unknown]
  - Blood uric acid abnormal [Unknown]
